FAERS Safety Report 6382466-3 (Version None)
Quarter: 2009Q3

REPORT INFORMATION
  Report Type: 
  Country: None (occurrence: None)
  Receive Date: 20090924
  Receipt Date: 20090327
  Transmission Date: 20100115
  Serious: Yes (Other)
  Sender: FDA-Public Use
  Company Number: WAES 0904USA02887

PATIENT

DRUGS (2)
  1. VYTORIN [Suspect]
     Dosage: PO
     Route: 048
  2. NIASPAN [Concomitant]

REACTIONS (1)
  - RHABDOMYOLYSIS [None]
